FAERS Safety Report 6417132-9 (Version None)
Quarter: 2009Q4

REPORT INFORMATION
  Report Type: 
  Country: None (occurrence: None)
  Receive Date: 20091028
  Receipt Date: 20091027
  Transmission Date: 20100525
  Serious: No
  Sender: FDA-Public Use
  Company Number: US-ROXANE LABORATORIES, INC.-2009-RO-01105RO

PATIENT
  Sex: Female

DRUGS (7)
  1. MEPERIDINE [Suspect]
     Indication: PAIN
     Dosage: 50 MG
  2. METOPROLOL [Concomitant]
  3. OYSTER SHELL CALCIUM [Concomitant]
  4. MULTI-VITAMIN [Concomitant]
  5. LUTEIN [Concomitant]
  6. SENNA [Concomitant]
  7. EXTRA STRENGTH TYLENOL [Concomitant]
     Indication: PAIN

REACTIONS (2)
  - DYSPNOEA [None]
  - MUSCLE SPASMS [None]
